FAERS Safety Report 19700572 (Version 2)
Quarter: 2021Q3

REPORT INFORMATION
  Report Type: Spontaneous
  Country: JP (occurrence: JP)
  Receive Date: 20210813
  Receipt Date: 20210924
  Transmission Date: 20211014
  Serious: Yes (Other)
  Sender: FDA-Public Use
  Company Number: JP-MYLANLABS-2021M1050526

PATIENT
  Age: 26 Year
  Sex: Female

DRUGS (10)
  1. GUSELKUMAB [Suspect]
     Active Substance: GUSELKUMAB
     Indication: PUSTULAR PSORIASIS
     Route: 065
  2. VITAMIN D3 [Suspect]
     Active Substance: CHOLECALCIFEROL
     Indication: PUSTULAR PSORIASIS
     Route: 065
  3. PREDNISOLONE. [Suspect]
     Active Substance: PREDNISOLONE
     Indication: IMPETIGO HERPETIFORMIS
     Dosage: 20 MILLIGRAM, QD
     Route: 065
  4. PREDNISOLONE. [Suspect]
     Active Substance: PREDNISOLONE
     Dosage: 10 MILLIGRAM, QD
     Route: 065
  5. GUSELKUMAB [Suspect]
     Active Substance: GUSELKUMAB
     Indication: PSORIASIS
  6. VITAMIN D3 [Suspect]
     Active Substance: CHOLECALCIFEROL
     Indication: PSORIASIS
  7. CERTOLIZUMAB PEGOL [Suspect]
     Active Substance: CERTOLIZUMAB PEGOL
     Indication: IMPETIGO HERPETIFORMIS
     Dosage: DOSAGE: FOUR TIMES BIWEEKLY
     Route: 065
  8. CICLOSPORIN [Suspect]
     Active Substance: CYCLOSPORINE
     Indication: IMPETIGO HERPETIFORMIS
     Dosage: 200 MILLIGRAM, QD
     Route: 065
  9. CICLOSPORIN [Suspect]
     Active Substance: CYCLOSPORINE
     Dosage: 150 MILLIGRAM, QW
     Route: 065
  10. ADALIMUMAB [Suspect]
     Active Substance: ADALIMUMAB
     Indication: IMPETIGO HERPETIFORMIS
     Route: 065

REACTIONS (3)
  - Condition aggravated [Recovering/Resolving]
  - Impetigo herpetiformis [Recovering/Resolving]
  - Maternal exposure during pregnancy [Recovered/Resolved]
